FAERS Safety Report 6060103-5 (Version None)
Quarter: 2009Q1

REPORT INFORMATION
  Report Type: 
  Country: None (occurrence: None)
  Receive Date: 20090128
  Receipt Date: 20090115
  Transmission Date: 20090719
  Serious: Yes (Hospitalization)
  Sender: FDA-Public Use
  Company Number: 2009-189721-NL

PATIENT
  Age: 32 Year
  Sex: Female

DRUGS (2)
  1. MARVELON [Suspect]
     Indication: CONTRACEPTION
     Dosage: 1 DF ORAL
     Route: 048
     Dates: end: 20081102
  2. SOTALOL [Concomitant]

REACTIONS (4)
  - AXILLARY VEIN THROMBOSIS [None]
  - CYANOSIS [None]
  - SUBCLAVIAN VEIN THROMBOSIS [None]
  - THROMBOPHLEBITIS SUPERFICIAL [None]
